FAERS Safety Report 8925543 (Version 1)
Quarter: 2012Q4

REPORT INFORMATION
  Report Type: 
  Country: US (occurrence: US)
  Receive Date: 20121126
  Receipt Date: 20121126
  Transmission Date: 20130627
  Serious: Yes (Hospitalization)
  Sender: FDA-Public Use
  Company Number: US-CELGENEUS-163-21880-12102984

PATIENT
  Age: 85 Year
  Sex: Female
  Weight: 61.29 kg

DRUGS (9)
  1. REVLIMID [Suspect]
     Indication: MULTIPLE MYELOMA
     Dosage: 15 Milligram
     Route: 048
     Dates: start: 20120925
  2. ALLOPURINOL [Concomitant]
     Indication: TUMOR LYSIS SYNDROME
     Dosage: 100 Milligram
     Route: 065
     Dates: start: 20120924, end: 20121015
  3. CALCIUM [Concomitant]
     Indication: DRUG USE FOR UNKNOWN INDICATION
     Dosage: 500 Milligram
     Route: 065
     Dates: start: 20120924
  4. DEXAMETHASONE [Concomitant]
     Indication: MULTIPLE MYELOMA
     Dosage: 4 Milligram
     Route: 065
     Dates: start: 20120924
  5. ZOMETA [Concomitant]
     Indication: BONE LESION
     Dosage: 4 Milligram
     Route: 065
     Dates: start: 20120924
  6. LISINOPRIL [Concomitant]
     Indication: DRUG USE FOR UNKNOWN INDICATION
     Dosage: 10 Milligram
     Route: 065
  7. TYLENOL [Concomitant]
     Indication: DRUG USE FOR UNKNOWN INDICATION
     Dosage: 325 Milligram
     Route: 065
  8. VITAMIN D2 [Concomitant]
     Indication: DRUG USE FOR UNKNOWN INDICATION
     Dosage: 50000 units
     Route: 065
  9. ACYCLOVIR [Concomitant]
     Indication: DRUG USE FOR UNKNOWN INDICATION
     Route: 065
     Dates: start: 2012

REACTIONS (1)
  - Failure to thrive [Recovering/Resolving]
